FAERS Safety Report 8881523 (Version 2)
Quarter: 2012Q4

REPORT INFORMATION
  Report Type: 
  Country: US (occurrence: US)
  Receive Date: 20121102
  Receipt Date: 20121127
  Transmission Date: 20130627
  Serious: No
  Sender: FDA-Public Use
  Company Number: US-ASTRAZENECA-2012SE81743

PATIENT
  Sex: Female

DRUGS (2)
  1. CRESTOR [Suspect]
     Indication: DYSLIPIDAEMIA
     Route: 048
  2. LIPITOR [Concomitant]

REACTIONS (3)
  - Blood pressure increased [Recovered/Resolved]
  - Lipids increased [Recovered/Resolved]
  - Drug ineffective [Unknown]
